FAERS Safety Report 7482534-9 (Version None)
Quarter: 2011Q2

REPORT INFORMATION
  Report Type: 
  Country: None (occurrence: None)
  Receive Date: 20110516
  Receipt Date: 20110422
  Transmission Date: 20111010
  Serious: Yes (Hospitalization, Other)
  Sender: FDA-Public Use
  Company Number: US-BAYER-201037527NA

PATIENT
  Age: 20 Year
  Sex: Female
  Weight: 84.807 kg

DRUGS (9)
  1. PERCOCET [Concomitant]
     Indication: PAIN
  2. ACETAMINOPHEN [Concomitant]
     Indication: PAIN
  3. PROTONIX [Concomitant]
     Indication: PEPTIC ULCER
     Dosage: 40 MG, QD
     Route: 048
  4. YAZ [Suspect]
     Indication: ORAL CONTRACEPTION
     Route: 048
     Dates: start: 20080902, end: 20081010
  5. VICODIN [Concomitant]
     Indication: PAIN
     Dosage: Q 4-6 HRS PRN
  6. PEPCID [Concomitant]
     Indication: PEPTIC ULCER
     Dosage: 20 MG, QD
     Dates: start: 20081008
  7. HYDROMORPHONE HCL [Concomitant]
  8. NORCO [Concomitant]
     Indication: PAIN
  9. DILAUDID [Concomitant]

REACTIONS (2)
  - THROMBOSIS [None]
  - PORTAL VEIN THROMBOSIS [None]
